FAERS Safety Report 8172535-X (Version None)
Quarter: 2012Q1

REPORT INFORMATION
  Report Type: 
  Country: None (occurrence: None)
  Receive Date: 20120229
  Receipt Date: 20120220
  Transmission Date: 20120608
  Serious: Yes (Other)
  Sender: FDA-Public Use
  Company Number: JP-JNJFOC-20120211669

PATIENT
  Sex: Male

DRUGS (1)
  1. STELARA [Suspect]
     Indication: PSORIASIS
     Dosage: INITIALLY EVERY 4 WEEKS, THEN EVERY 12 WEEKS (EXACT THERAPY DATES NOT PROVIDED)
     Route: 058
     Dates: start: 20110823, end: 20120220

REACTIONS (1)
  - TONSIL CANCER [None]
